FAERS Safety Report 4698843-2 (Version None)
Quarter: 2005Q2

REPORT INFORMATION
  Report Type: 
  Country: None (occurrence: None)
  Receive Date: 20050622
  Receipt Date: 20050608
  Transmission Date: 20051028
  Serious: Yes (Hospitalization)
  Sender: FDA-Public Use
  Company Number: WAES 0503USA02686

PATIENT
  Age: 45 Year
  Sex: Male
  Weight: 81.6475 kg

DRUGS (5)
  1. VIOXX [Suspect]
     Indication: ROTATOR CUFF SYNDROME
     Dosage: 25 MG/DAILY/PO
     Route: 048
     Dates: start: 20021219, end: 20031201
  2. VIOXX [Suspect]
     Indication: ROTATOR CUFF SYNDROME
     Dosage: 25 MG/DAILY/PO
     Route: 048
     Dates: start: 20020601, end: 20031217
  3. FLONASE [Concomitant]
  4. SINGULAIR [Concomitant]
  5. PREDNISONE TAB [Concomitant]

REACTIONS (7)
  - BLOOD PRESSURE INCREASED [None]
  - CORONARY ARTERY THROMBOSIS [None]
  - DEPRESSION POSTOPERATIVE [None]
  - FATIGUE [None]
  - HAEMATOCRIT DECREASED [None]
  - MYOCARDIAL INFARCTION [None]
  - ULCER [None]
